FAERS Safety Report 15278938 (Version 2)
Quarter: 2018Q4

REPORT INFORMATION
  Report Type: Spontaneous
  Country: NO (occurrence: NO)
  Receive Date: 20180815
  Receipt Date: 20181011
  Transmission Date: 20190204
  Serious: Yes (Life-Threatening, Hospitalization, Other)
  Sender: FDA-Public Use
  Company Number: NO-TEVA-2018-NO-940984

PATIENT
  Age: 66 Year
  Sex: Male

DRUGS (5)
  1. DEXCHLORPHENIRAMINE [Concomitant]
     Active Substance: DEXCHLORPHENIRAMINE
     Dosage: 1,5 HOURS BEFORE START OF INFUSION OF CHEMOTHERAPY.
     Route: 065
     Dates: start: 20171205, end: 20171205
  2. DEXAMETHASONE. [Concomitant]
     Active Substance: DEXAMETHASONE
     Indication: PREMEDICATION
  3. DEXAMETHASONE. [Concomitant]
     Active Substance: DEXAMETHASONE
     Indication: PRODUCT USED FOR UNKNOWN INDICATION
     Dosage: 16 MILLIGRAM DAILY; 8 MG, Q12H
     Route: 048
     Dates: start: 20171204, end: 20171205
  4. PEMETREXED. [Suspect]
     Active Substance: PEMETREXED
     Indication: MESOTHELIOMA MALIGNANT
     Dosage: 900 MG, UNK
     Route: 042
     Dates: start: 20171205, end: 20171205
  5. CARBOPLATIN. [Suspect]
     Active Substance: CARBOPLATIN
     Indication: MESOTHELIOMA MALIGNANT
     Dosage: 900 MG, UNK
     Route: 042
     Dates: start: 20171205, end: 20171205

REACTIONS (7)
  - Dyspnoea [Recovered/Resolved]
  - Cold sweat [Recovered/Resolved]
  - Hypotension [Recovered/Resolved]
  - Ocular hyperaemia [Recovered/Resolved]
  - Product use in unapproved indication [Unknown]
  - Dysarthria [Recovered/Resolved]
  - Loss of consciousness [Recovered/Resolved]

NARRATIVE: CASE EVENT DATE: 20171205
